FAERS Safety Report 16440308 (Version 4)
Quarter: 2019Q3

REPORT INFORMATION
  Report Type: Spontaneous
  Country: US (occurrence: US)
  Receive Date: 20190617
  Receipt Date: 20190723
  Transmission Date: 20191004
  Serious: Yes (Death, Life-Threatening)
  Sender: FDA-Public Use
  Company Number: US-AMREGENT-20191233

PATIENT
  Age: 95 Year
  Sex: Female
  Weight: 64 kg

DRUGS (2)
  1. MIRCERA [Suspect]
     Active Substance: METHOXY POLYETHYLENE GLYCOL-EPOETIN BETA
     Dosage: 30 MCG, 1 IN 2 WK
     Route: 040
     Dates: start: 20190525, end: 20190525
  2. VENOFER [Suspect]
     Active Substance: IRON SUCROSE
     Dosage: 100 MG, EVERY TREATMENT
     Route: 040
     Dates: start: 20190525, end: 20190525

REACTIONS (2)
  - Unresponsive to stimuli [Fatal]
  - Arteriosclerosis coronary artery [Fatal]

NARRATIVE: CASE EVENT DATE: 20190525
